FAERS Safety Report 17197084 (Version 1)
Quarter: 2019Q4

REPORT INFORMATION
  Report Type: Spontaneous
  Country: US (occurrence: US)
  Receive Date: 20191224
  Receipt Date: 20191224
  Transmission Date: 20200122
  Serious: No
  Sender: FDA-Public Use
  Company Number: US-TEVA-2019-US-1155966

PATIENT
  Sex: Female

DRUGS (1)
  1. ZOVIA [Suspect]
     Active Substance: ETHINYL ESTRADIOL\ETHYNODIOL DIACETATE
     Indication: DEPRESSION
     Dosage: 1/50, 1/35
     Route: 065

REACTIONS (3)
  - Depression [Unknown]
  - Off label use [Unknown]
  - Product availability issue [Unknown]
